FAERS Safety Report 25574637 (Version 1)
Quarter: 2025Q3

REPORT INFORMATION
  Report Type: Spontaneous
  Country: EU (occurrence: EU)
  Receive Date: 20250718
  Receipt Date: 20250718
  Transmission Date: 20251021
  Serious: Yes (Hospitalization, Other)
  Sender: INDOCO REMEDIES LIMITED
  Company Number: EU-INDOCO-IND-2025-DE-SPO-00658

PATIENT
  Age: 87 Year
  Sex: Female
  Weight: 60 kg

DRUGS (22)
  1. ALLOPURINOL [Suspect]
     Active Substance: ALLOPURINOL
     Indication: Product used for unknown indication
     Dosage: 100 MILLIGRAM, QD
     Route: 065
  2. ATORVASTATIN CALCIUM [Suspect]
     Active Substance: ATORVASTATIN CALCIUM
     Indication: Product used for unknown indication
     Dosage: 20 MILLIGRAM, QD
     Route: 065
  3. BISOPROLOL FUMARATE [Suspect]
     Active Substance: BISOPROLOL FUMARATE
     Indication: Product used for unknown indication
     Route: 065
  4. CHOLECALCIFEROL [Suspect]
     Active Substance: CHOLECALCIFEROL
     Indication: Product used for unknown indication
     Dosage: 20000 1 X 1 WEEKLY
     Route: 065
  5. ELIQUIS [Suspect]
     Active Substance: APIXABAN
     Indication: Cerebrovascular accident prophylaxis
     Dosage: 2.5 MILLIGRAM, BID
     Route: 065
     Dates: start: 2018
  6. ELIQUIS [Suspect]
     Active Substance: APIXABAN
     Indication: Atrial fibrillation
  7. IRON [Suspect]
     Active Substance: IRON
     Indication: Product used for unknown indication
     Route: 065
  8. GENTAMICIN [Suspect]
     Active Substance: GENTAMICIN
     Indication: Product used for unknown indication
     Dosage: QD
     Route: 065
  9. HYALURONATE SODIUM [Suspect]
     Active Substance: HYALURONATE SODIUM
     Indication: Dry eye
     Dosage: TID
     Route: 065
  10. INSULIN NOS [Suspect]
     Active Substance: INSULIN NOS
     Indication: Product used for unknown indication
     Route: 065
  11. INSULIN LISPRO [Suspect]
     Active Substance: INSULIN LISPRO
     Indication: Product used for unknown indication
     Route: 065
  12. BENFOTIAMINE [Suspect]
     Active Substance: BENFOTIAMINE
     Indication: Neuropathy peripheral
     Dosage: QD
     Route: 065
  13. COD LIVER OIL\UREA\ZINC OXIDE [Suspect]
     Active Substance: COD LIVER OIL\UREA\ZINC OXIDE
     Indication: Product used for unknown indication
     Route: 065
  14. MOVICOL [Suspect]
     Active Substance: POLYETHYLENE GLYCOL 3350\POTASSIUM CHLORIDE\SODIUM BICARBONATE\SODIUM CHLORIDE
     Indication: Constipation
     Route: 065
  15. POTASSIUM CHLORIDE [Suspect]
     Active Substance: POTASSIUM CHLORIDE
     Indication: Product used for unknown indication
     Dosage: QD
     Route: 065
  16. MIRTAZAPINE [Suspect]
     Active Substance: MIRTAZAPINE
     Indication: Sleep disorder
     Dosage: 15 MILLIGRAM, QD
     Route: 065
  17. NITROLINGUAL [Suspect]
     Active Substance: NITROGLYCERIN
     Indication: Product used for unknown indication
     Route: 065
  18. NOVALGIN (METAMIZOLE SODIUM) [Suspect]
     Active Substance: METAMIZOLE SODIUM
     Indication: Product used for unknown indication
     Route: 065
  19. PANTOPRAZOLE SODIUM [Suspect]
     Active Substance: PANTOPRAZOLE SODIUM
     Indication: Product used for unknown indication
     Dosage: 20 MILLIGRAM, QD
     Route: 065
  20. PREGABALIN [Suspect]
     Active Substance: PREGABALIN
     Indication: Neuropathy peripheral
     Route: 065
  21. TORSEMIDE [Suspect]
     Active Substance: TORSEMIDE
     Indication: Fluid retention
     Route: 065
  22. XIPAMIDE [Suspect]
     Active Substance: XIPAMIDE
     Indication: Product used for unknown indication
     Dosage: 40 MILLIGRAM, QD
     Route: 065

REACTIONS (2)
  - Gastrointestinal haemorrhage [Unknown]
  - Drug interaction [Unknown]
